FAERS Safety Report 7690742-7 (Version None)
Quarter: 2011Q3

REPORT INFORMATION
  Report Type: 
  Country: None (occurrence: None)
  Receive Date: 20110818
  Receipt Date: 20110810
  Transmission Date: 20111222
  Serious: Yes (Other)
  Sender: FDA-Public Use
  Company Number: DE-ASTELLAS-2011US004898

PATIENT
  Sex: Male

DRUGS (1)
  1. TARCEVA [Suspect]
     Indication: LUNG NEOPLASM
     Dosage: 100 MG, UID/QD
     Route: 048
     Dates: start: 20100201

REACTIONS (6)
  - SUNBURN [None]
  - MUSCLE SPASMS [None]
  - LACRIMATION INCREASED [None]
  - NAIL BED INFLAMMATION [None]
  - EYE IRRITATION [None]
  - PHOTOSENSITIVITY REACTION [None]
